FAERS Safety Report 9299588 (Version 1)
Quarter: 2013Q2

REPORT INFORMATION
  Report Type: Spontaneous
  Country: US (occurrence: US)
  Receive Date: 20130521
  Receipt Date: 20130521
  Transmission Date: 20140414
  Serious: No
  Sender: FDA-Public Use
  Company Number: US-BIOGENIDEC-2013BI038938

PATIENT
  Sex: Female

DRUGS (5)
  1. AVONEX [Suspect]
     Indication: MULTIPLE SCLEROSIS
     Route: 030
     Dates: start: 19970528
  2. TYSABRI [Concomitant]
     Indication: MULTIPLE SCLEROSIS
     Route: 042
  3. AVONEX [Suspect]
     Indication: MULTIPLE SCLEROSIS
     Route: 030
     Dates: start: 201302
  4. AVONEX [Suspect]
     Indication: MULTIPLE SCLEROSIS
     Route: 030
     Dates: start: 20130425
  5. AVONEX [Suspect]
     Indication: MULTIPLE SCLEROSIS
     Route: 030
     Dates: start: 2013

REACTIONS (8)
  - Mobility decreased [Recovered/Resolved]
  - Coordination abnormal [Recovered/Resolved with Sequelae]
  - Musculoskeletal chest pain [Recovered/Resolved with Sequelae]
  - Pain [Unknown]
  - Dyspnoea [Recovered/Resolved]
  - Angina pectoris [Recovered/Resolved with Sequelae]
  - Fatigue [Recovered/Resolved]
  - Anxiety [Unknown]
